FAERS Safety Report 9515286 (Version 1)
Quarter: 2013Q1

REPORT INFORMATION
  Report Type: Spontaneous
  Country: US (occurrence: None)
  Receive Date: 20130305
  Receipt Date: 20130305
  Transmission Date: 20140127
  Serious: Yes (Hospitalization)
  Sender: FDA-Public Use
  Company Number: 163-21880-12121480

PATIENT
  Age: 67 Year
  Sex: Female

DRUGS (11)
  1. REVLIMID [Suspect]
     Indication: PLASMA CELL MYELOMA
     Dosage: 15 MG, PO
     Route: 048
     Dates: start: 20111213
  2. ACYCLOVIR (ACICLOVIR) (CAPSULES) [Concomitant]
  3. BACTRIM DS (BACTRIM) (UNKNOWN) [Concomitant]
  4. CLONAZEPAM (CLONAZEPAM) (UNKNOWN) [Concomitant]
  5. DEXAMETHASONE (DEXAMETHASONE) (UNKNOWN) [Concomitant]
  6. FOLIC ACID (FOLIC ACID) (UNKNOWN) [Concomitant]
  7. GABAPENTIN (GABAPENTIN) (UNKNOWN) (GABAPENTIN) [Concomitant]
  8. LANSOPRAZOLE (LANSOPRAZOLE) (UNKNOWN) [Concomitant]
  9. LORAZEPAM (LORAZEPAM) (TABLETS) [Concomitant]
  10. MAGNESIUM OXIDE (MAGNESIUM OXIDE) (UNKNOWN) [Concomitant]
  11. MULTIVITAMINS (MULTIVITAMINS) (CAPSULES) [Concomitant]

REACTIONS (1)
  - Influenza [None]
